FAERS Safety Report 9898719 (Version 1)
Quarter: 2014Q1

REPORT INFORMATION
  Report Type: Spontaneous
  Country: US (occurrence: US)
  Receive Date: 20140214
  Receipt Date: 20140214
  Transmission Date: 20141002
  Serious: Yes (Hospitalization)
  Sender: FDA-Public Use
  Company Number: US-BAXTER-2014BAX006582

PATIENT
  Sex: Male

DRUGS (8)
  1. DIANEAL LOW CALCIUM [Suspect]
     Indication: RENAL FAILURE CHRONIC
     Route: 033
     Dates: start: 20100208
  2. DIANEAL LOW CALCIUM [Suspect]
     Route: 033
     Dates: start: 20100208
  3. DIANEAL LOW CALCIUM [Suspect]
     Route: 033
  4. DIANEAL LOW CALCIUM [Suspect]
     Route: 033
  5. DIANEAL LOW CALCIUM [Suspect]
     Indication: RENAL FAILURE CHRONIC
     Route: 033
     Dates: start: 20100208
  6. DIANEAL LOW CALCIUM [Suspect]
     Route: 033
     Dates: start: 20100208
  7. DIANEAL LOW CALCIUM [Suspect]
     Route: 033
  8. DIANEAL LOW CALCIUM [Suspect]
     Route: 033

REACTIONS (2)
  - Umbilical hernia [Recovered/Resolved]
  - Abdominal distension [Not Recovered/Not Resolved]
